FAERS Safety Report 16488537 (Version 1)
Quarter: 2019Q2

REPORT INFORMATION
  Report Type: Spontaneous
  Country: US (occurrence: US)
  Receive Date: 20190517
  Receipt Date: 20190517
  Transmission Date: 20190711
  Serious: Yes (Other)
  Sender: FDA-Public Use
  Company Number: None

PATIENT
  Age: 47 Year
  Sex: Female

DRUGS (1)
  1. AFINITOR [Suspect]
     Active Substance: EVEROLIMUS
     Indication: BREAST CANCER FEMALE
     Route: 048
     Dates: start: 20190403

REACTIONS (6)
  - Blister [None]
  - Abdominal pain upper [None]
  - Arthralgia [None]
  - Flatulence [None]
  - Oral mucosal blistering [None]
  - Swelling of eyelid [None]

NARRATIVE: CASE EVENT DATE: 201904
